FAERS Safety Report 24444664 (Version 2)
Quarter: 2024Q4

REPORT INFORMATION
  Report Type: Spontaneous
  Country: FR (occurrence: FR)
  Receive Date: 20241016
  Receipt Date: 20241112
  Transmission Date: 20250114
  Serious: Yes (Hospitalization, Other)
  Sender: MYLAN
  Company Number: FR-SERVIER-S24012047

PATIENT
  Age: 17 Year
  Sex: Male
  Weight: 76 kg

DRUGS (8)
  1. DICLOFENAC [Suspect]
     Active Substance: DICLOFENAC
     Indication: Product used for unknown indication
     Dosage: 20 DOSAGE FORM (20 TABLETS) IN 36 HOURS
     Route: 065
  2. PANTOPRAZOLE [Suspect]
     Active Substance: PANTOPRAZOLE
     Indication: Product used for unknown indication
     Dosage: 14 DOSAGE FORM (14 TABLETS) IN 36 HOURS
     Route: 065
  3. AMLODIPINE\PERINDOPRIL [Suspect]
     Active Substance: AMLODIPINE\PERINDOPRIL
     Indication: Product used for unknown indication
     Dosage: 30 DOSAGE FORM (30 TABLETS) IN 36 HOURS
     Route: 065
  4. DESLORATADINE [Suspect]
     Active Substance: DESLORATADINE
     Indication: Product used for unknown indication
     Dosage: 15 DOSAGE FORM (15 TABLETS) IN 36 HOURS
     Route: 065
  5. KETOPROFEN [Suspect]
     Active Substance: KETOPROFEN
     Indication: Product used for unknown indication
     Dosage: 16 DOSAGE FORM (16 TABLETS) IN 36 HOURS
     Route: 065
  6. ACETAMINOPHEN [Suspect]
     Active Substance: ACETAMINOPHEN
     Indication: Product used for unknown indication
     Dosage: 16 DOSAGE FORM (16 TABLETS) IN 36 HOURS
     Route: 065
  7. METFORMIN\SITAGLIPTIN [Suspect]
     Active Substance: METFORMIN\SITAGLIPTIN
     Indication: Product used for unknown indication
     Dosage: 15 DOSAGE FORM (15 TABLETS) IN 36 HOURS
     Route: 065
  8. ACETAMINOPHEN\CHLORPHENIRAMINE MALEATE\SODIUM ASCORBATE [Suspect]
     Active Substance: ACETAMINOPHEN\CHLORPHENIRAMINE MALEATE\SODIUM ASCORBATE
     Indication: Product used for unknown indication
     Dosage: 6 DOSAGE FORM (6 TABLETS) IN 36 HOURS
     Route: 065

REACTIONS (13)
  - Livedo reticularis [Recovered/Resolved]
  - Electrocardiogram T wave peaked [Recovered/Resolved]
  - Hyperleukocytosis [Recovered/Resolved]
  - Heart rate increased [Recovered/Resolved]
  - Prothrombin time abnormal [Recovered/Resolved]
  - Drug abuse [Unknown]
  - Hyperkalaemia [Recovered/Resolved]
  - Hypotension [Recovered/Resolved]
  - Acute kidney injury [Recovered/Resolved]
  - Abdominal pain [Recovered/Resolved]
  - Vomiting [Recovered/Resolved]
  - Toxicity to various agents [Recovered/Resolved]
  - Intentional overdose [Recovered/Resolved]
